FAERS Safety Report 7966855-9 (Version None)
Quarter: 2011Q4

REPORT INFORMATION
  Report Type: 
  Country: None (occurrence: None)
  Receive Date: 20111209
  Receipt Date: 20111206
  Transmission Date: 20120403
  Serious: No
  Sender: FDA-Public Use
  Company Number: US-PFIZER INC-2011283223

PATIENT
  Sex: Female

DRUGS (2)
  1. LYRICA [Suspect]
     Dosage: UNK
  2. NORCO [Suspect]
     Dosage: 5/325 MG, UNK
     Route: 048

REACTIONS (3)
  - DRUG INTOLERANCE [None]
  - VOMITING [None]
  - NAUSEA [None]
